FAERS Safety Report 4978997-0 (Version None)
Quarter: 2006Q2

REPORT INFORMATION
  Report Type: 
  Country: None (occurrence: None)
  Receive Date: 20060417
  Receipt Date: 20060406
  Transmission Date: 20061013
  Serious: Yes (Other)
  Sender: FDA-Public Use
  Company Number: HQWYE702107APR06

PATIENT
  Age: 74 Year
  Sex: Male

DRUGS (1)
  1. ROFERON-A [Suspect]
     Indication: RENAL CELL CARCINOMA STAGE UNSPECIFIED
     Dosage: 4.5 MU THREE TIMES A WEEK
     Dates: start: 20041228

REACTIONS (1)
  - ATRIAL FIBRILLATION [None]
